FAERS Safety Report 5987855-4 (Version None)
Quarter: 2008Q4

REPORT INFORMATION
  Report Type: 
  Country: None (occurrence: None)
  Receive Date: 20081209
  Receipt Date: 20081203
  Transmission Date: 20090506
  Serious: Yes (Hospitalization)
  Sender: FDA-Public Use
  Company Number: JP-MERCK-0812USA01508

PATIENT
  Age: 30 Year
  Sex: Male

DRUGS (5)
  1. FOSAMAX [Suspect]
     Route: 048
  2. PREDNISOLONE [Concomitant]
     Indication: HENOCH-SCHONLEIN PURPURA
     Route: 065
  3. PREDNISOLONE [Concomitant]
     Indication: NEPHRITIS
     Route: 065
  4. ALFACALCIDOL [Concomitant]
     Indication: OSTEOPOROSIS PROPHYLAXIS
     Route: 048
  5. FLUVOXAMINE MALEATE [Concomitant]
     Indication: DEPRESSION
     Route: 048

REACTIONS (2)
  - OESOPHAGITIS ULCERATIVE [None]
  - TYPE IV HYPERSENSITIVITY REACTION [None]
